FAERS Safety Report 5233631-X (Version None)
Quarter: 2007Q1

REPORT INFORMATION
  Report Type: 
  Country: None (occurrence: None)
  Receive Date: 20061208
  Receipt Date: 20060314
  Transmission Date: 20070707
  Serious: Yes (Other)
  Sender: FDA-Public Use
  Company Number: 2006UW04280

PATIENT

DRUGS (1)
  1. CRESTOR [Suspect]

REACTIONS (4)
  - BRONCHOSPASM [None]
  - GASTROOESOPHAGEAL REFLUX DISEASE [None]
  - PHARYNGITIS [None]
  - POLYP [None]
